FAERS Safety Report 8229822-6 (Version None)
Quarter: 2012Q1

REPORT INFORMATION
  Report Type: 
  Country: None (occurrence: None)
  Receive Date: 20120323
  Receipt Date: 20120309
  Transmission Date: 20120608
  Serious: Yes (Other)
  Sender: FDA-Public Use
  Company Number: CA-MYLANLABS-2012S1005649

PATIENT
  Age: 77 Year
  Sex: Female

DRUGS (6)
  1. AMITRIPTYLINE HCL [Suspect]
     Route: 065
  2. FUROSEMIDE [Suspect]
     Route: 065
  3. CITALOPRAM HYDROBROMIDE [Suspect]
     Route: 065
  4. QUETIAPINE [Suspect]
     Route: 065
  5. METOPROLOL SUCCINATE [Suspect]
     Route: 065
  6. DILTIAZEM HCL [Suspect]
     Route: 065

REACTIONS (3)
  - TORSADE DE POINTES [None]
  - ATRIOVENTRICULAR BLOCK COMPLETE [None]
  - ELECTROCARDIOGRAM QT PROLONGED [None]
